FAERS Safety Report 7096561-7 (Version None)
Quarter: 2010Q4

REPORT INFORMATION
  Report Type: 
  Country: None (occurrence: None)
  Receive Date: 20101111
  Receipt Date: 20101104
  Transmission Date: 20110411
  Serious: Yes (Hospitalization)
  Sender: FDA-Public Use
  Company Number: B0680140A

PATIENT
  Sex: Female

DRUGS (3)
  1. PAZOPANIB [Suspect]
     Dosage: 400MG PER DAY
  2. IRBESARTAN [Concomitant]
     Indication: HYPERTENSION
     Dosage: 150MG PER DAY
     Route: 048
  3. DINISOR RETARD [Concomitant]
     Indication: HYPERTENSION
     Dosage: 120MG PER DAY
     Route: 048

REACTIONS (1)
  - BLOOD CREATINE INCREASED [None]
